FAERS Safety Report 8846565 (Version 2)
Quarter: 2012Q4

REPORT INFORMATION
  Report Type: 
  Country: NZ (occurrence: NZ)
  Receive Date: 20121017
  Receipt Date: 20121109
  Transmission Date: 20130627
  Serious: Yes (Death)
  Sender: FDA-Public Use
  Company Number: NZ-GLAXOSMITHKLINE-B0838354A

PATIENT
  Age: 56 Year
  Sex: Female

DRUGS (1)
  1. ONDANSETRON [Suspect]
     Indication: PYREXIA
     Route: 065
     Dates: start: 20121009

REACTIONS (1)
  - Sudden death [Fatal]
